FAERS Safety Report 7001785-0 (Version None)
Quarter: 2010Q3

REPORT INFORMATION
  Report Type: 
  Country: None (occurrence: None)
  Receive Date: 20100920
  Receipt Date: 20070613
  Transmission Date: 20110219
  Serious: Yes (Other)
  Sender: FDA-Public Use
  Company Number: US-ASTRAZENECA-2006UW12304

PATIENT
  Age: 37 Year
  Sex: Male
  Weight: 77.8 kg

DRUGS (19)
  1. SEROQUEL [Suspect]
     Indication: BIPOLAR DISORDER
     Dosage: 200 MG - 600 MG
     Route: 048
     Dates: start: 20000101
  2. SEROQUEL [Suspect]
     Indication: DEPRESSION
     Dosage: 200 MG - 600 MG
     Route: 048
     Dates: start: 20000101
  3. SEROQUEL [Suspect]
     Dosage: 25-500 MG AT NIGHT
     Route: 048
     Dates: start: 20010705
  4. SEROQUEL [Suspect]
     Dosage: 25-500 MG AT NIGHT
     Route: 048
     Dates: start: 20010705
  5. ZYPREXA [Suspect]
     Dates: start: 20000101, end: 20040101
  6. ABILIFY [Concomitant]
  7. CLOZARIL [Concomitant]
  8. HALDOL [Concomitant]
  9. RISPERDAL [Concomitant]
  10. TENORMIN [Concomitant]
     Dosage: 25-50 MG DAILY
     Dates: start: 19971018
  11. LIPITOR [Concomitant]
     Dates: start: 20010705
  12. WELLBUTRIN SR [Concomitant]
     Dosage: 200 MG EVERY MORNING AND EVENING
     Dates: start: 20010705
  13. CELEXA [Concomitant]
     Dates: start: 20010705
  14. DEPAKOTE [Concomitant]
     Dosage: 100 MG EVERY MORNING AND 1250-1500 MG EVERY EVENING
     Dates: start: 20010705
  15. HYDRODIURIL [Concomitant]
     Dates: start: 20010705
  16. PREVACID [Concomitant]
     Dates: start: 20010705
  17. LEVOTHROID/SYNTHROID [Concomitant]
     Dates: start: 20010705
  18. LAMICTAL [Concomitant]
     Dates: start: 20020821
  19. VASOTEC [Concomitant]
     Dates: start: 20020821

REACTIONS (3)
  - DIABETES MELLITUS [None]
  - HYPOGLYCAEMIA [None]
  - TYPE 2 DIABETES MELLITUS [None]
